FAERS Safety Report 5418084-0 (Version None)
Quarter: 2007Q3

REPORT INFORMATION
  Report Type: 
  Country: None (occurrence: None)
  Receive Date: 20070817
  Receipt Date: 20070810
  Transmission Date: 20080115
  Serious: Yes (Other)
  Sender: FDA-Public Use
  Company Number: NL-ELI_LILLY_AND_COMPANY-NL200708002824

PATIENT
  Sex: Female

DRUGS (4)
  1. GEMZAR [Suspect]
     Indication: LUNG NEOPLASM MALIGNANT
     Dosage: 1000 MG/M2, UNK
     Route: 042
  2. CISPLATIN [Concomitant]
     Indication: LUNG NEOPLASM MALIGNANT
     Dosage: 70 MG/M2, UNK
     Route: 042
  3. CORTICOSTEROIDS [Concomitant]
     Indication: METASTASES TO NERVOUS SYSTEM
  4. BORTEZOMIB [Concomitant]
     Indication: LUNG NEOPLASM MALIGNANT

REACTIONS (2)
  - GASTRIC PERFORATION [None]
  - METASTASES TO NERVOUS SYSTEM [None]
